FAERS Safety Report 4289532-7 (Version None)
Quarter: 2004Q1

REPORT INFORMATION
  Report Type: 
  Country: None (occurrence: None)
  Receive Date: 20040126
  Receipt Date: 20030925
  Transmission Date: 20041129
  Serious: No
  Sender: FDA-Public Use
  Company Number: USA030948354

PATIENT
  Age: 68 Year
  Sex: Female
  Weight: 49 kg

DRUGS (10)
  1. FORTEO [Suspect]
     Indication: OSTEOPOROSIS
     Dates: start: 20030601
  2. TYLENOL W/ CODEINE NO. 3 [Concomitant]
  3. MEDROL [Concomitant]
  4. TRIMETHOPRIM [Concomitant]
  5. PROTONIX [Concomitant]
  6. VALIUM [Concomitant]
  7. DICYCLOMINE (DICYCLOVERINE) [Concomitant]
  8. ARICEPT [Concomitant]
  9. MULTI-VITAMIN [Concomitant]
  10. CALCIUM WITH VITAMIN D [Concomitant]

REACTIONS (11)
  - ASTHENIA [None]
  - BLOOD PRESSURE INCREASED [None]
  - BONE PAIN [None]
  - FATIGUE [None]
  - FLUSHING [None]
  - HEADACHE [None]
  - HYPERHIDROSIS [None]
  - INCREASED TENDENCY TO BRUISE [None]
  - INJECTION SITE HAEMORRHAGE [None]
  - MUSCLE CRAMP [None]
  - WEIGHT INCREASED [None]
